FAERS Safety Report 22268264 (Version 2)
Quarter: 2023Q2

REPORT INFORMATION
  Report Type: Spontaneous
  Country: US (occurrence: US)
  Receive Date: 20230430
  Receipt Date: 20230510
  Transmission Date: 20230721
  Serious: No
  Sender: FDA-Public Use
  Company Number: US-SA-SAC20230424000231

PATIENT
  Age: 13 Year
  Sex: Male

DRUGS (5)
  1. ELOCTATE [Suspect]
     Active Substance: EFMOROCTOCOG ALFA
     Indication: Factor VIII deficiency
     Dosage: 2100 U, SLOW IV PUSH ON TUESDAY, FRIDAY, AND AS NEEDED FOR BREAKTHROUGH BLEEDS
     Route: 042
     Dates: start: 202110
  2. ELOCTATE [Suspect]
     Active Substance: EFMOROCTOCOG ALFA
     Indication: Factor VIII deficiency
     Dosage: 2100 U, SLOW IV PUSH ON TUESDAY, FRIDAY, AND AS NEEDED FOR BREAKTHROUGH BLEEDS
     Route: 042
     Dates: start: 202110
  3. TYLENOL [Concomitant]
     Active Substance: ACETAMINOPHEN
     Dosage: UNK UNK, Q3W
  4. ZYRTEC [Concomitant]
     Active Substance: CETIRIZINE HYDROCHLORIDE
     Dosage: UNK UNK, Q3W
     Route: 065
  5. FLONASE [Concomitant]
     Active Substance: FLUTICASONE PROPIONATE
     Dosage: UNK UNK, Q3W

REACTIONS (2)
  - Traumatic haemorrhage [Recovered/Resolved]
  - Swelling [Unknown]

NARRATIVE: CASE EVENT DATE: 20230418
